FAERS Safety Report 20569913 (Version 2)
Quarter: 2022Q2

REPORT INFORMATION
  Report Type: Spontaneous
  Country: NL (occurrence: NL)
  Receive Date: 20220309
  Receipt Date: 20220422
  Transmission Date: 20220721
  Serious: Yes (Hospitalization, Other)
  Sender: FDA-Public Use
  Company Number: None

PATIENT
  Age: 80 Year
  Sex: Female
  Weight: 68 kg

DRUGS (7)
  1. SOTROVIMAB [Suspect]
     Active Substance: SOTROVIMAB
     Indication: COVID-19
     Dosage: 500 MG (ONCE)
     Route: 065
     Dates: start: 20220216
  2. CAD ORANGE [Concomitant]
     Indication: Product used for unknown indication
     Dosage: UNK SACHET (EFFERVESCENT GRANULES), 1.25 G (GRAMS)/880 UNITS
     Route: 065
  3. FOLIC ACID [Concomitant]
     Active Substance: FOLIC ACID
     Indication: Product used for unknown indication
     Dosage: 5 MG TABLET
     Route: 065
  4. ROSUVASTATIN [Concomitant]
     Active Substance: ROSUVASTATIN
     Indication: Product used for unknown indication
     Dosage: 5 MG TABLET
     Route: 065
  5. PREDNISON TABLET [Concomitant]
     Indication: Product used for unknown indication
     Dosage: 5 MG TABLET
     Route: 065
  6. METHOTREXATE [Concomitant]
     Active Substance: METHOTREXATE
     Indication: Product used for unknown indication
     Dosage: 2.5 MG TABLET
     Route: 065
  7. PANTOPRAZOL TABLET [Concomitant]
     Indication: Product used for unknown indication
     Dosage: 20 MG GASTRO-RESISTANT TABLET,
     Route: 065

REACTIONS (1)
  - Cerebral ischaemia [Recovering/Resolving]

NARRATIVE: CASE EVENT DATE: 20220224
